FAERS Safety Report 24362039 (Version 1)
Quarter: 2024Q3

REPORT INFORMATION
  Report Type: Spontaneous
  Country: US (occurrence: None)
  Receive Date: 20240924
  Receipt Date: 20240924
  Transmission Date: 20241017
  Serious: Yes (Life-Threatening)
  Sender: Public
  Company Number: None

PATIENT
  Age: 81 Year
  Sex: Male
  Weight: 83.25 kg

DRUGS (3)
  1. PLUVICTO [Suspect]
     Active Substance: LUTETIUM LU-177 VIPIVOTIDE TETRAXETAN
     Indication: Hormone-refractory prostate cancer
     Dosage: 200 MCI MILLICURIE(S) EVERY 6 WEEKS INTRAVENOUS BOLUS?
     Route: 040
     Dates: start: 20240327, end: 20240801
  2. PLUVICTO [Suspect]
     Active Substance: LUTETIUM LU-177 VIPIVOTIDE TETRAXETAN
     Indication: Prostate cancer metastatic
  3. ELIGUARD [Concomitant]

REACTIONS (2)
  - Malignant transformation [None]
  - Neuroendocrine carcinoma [None]

NARRATIVE: CASE EVENT DATE: 20240916
